FAERS Safety Report 8388144-3 (Version None)
Quarter: 2012Q2

REPORT INFORMATION
  Report Type: 
  Country: None (occurrence: None)
  Receive Date: 20120525
  Receipt Date: 20120521
  Transmission Date: 20120825
  Serious: Yes (Hospitalization)
  Sender: FDA-Public Use
  Company Number: US-ROXANE LABORATORIES, INC.-2012-RO-01293RO

PATIENT
  Age: 20 Year
  Sex: Female

DRUGS (1)
  1. PREDNISONE TAB [Suspect]

REACTIONS (10)
  - RASH [None]
  - DYSPEPSIA [None]
  - GLOSSODYNIA [None]
  - GAIT DISTURBANCE [None]
  - CONSTIPATION [None]
  - OEDEMA PERIPHERAL [None]
  - SWELLING [None]
  - HAEMATOCHEZIA [None]
  - TONGUE DISCOLOURATION [None]
  - TONGUE HAEMORRHAGE [None]
